FAERS Safety Report 4599938-4 (Version None)
Quarter: 2005Q1

REPORT INFORMATION
  Report Type: 
  Country: None (occurrence: None)
  Receive Date: 20050307
  Receipt Date: 20041208
  Transmission Date: 20050727
  Serious: No
  Sender: FDA-Public Use
  Company Number: US-MERCK-0412USA01108

PATIENT
  Age: 58 Year
  Sex: Female
  Weight: 96 kg

DRUGS (1)
  1. VIOXX [Suspect]
     Indication: ARTHRITIS
     Route: 048
     Dates: start: 19990625

REACTIONS (1)
  - COLITIS ULCERATIVE [None]
